FAERS Safety Report 9551276 (Version 1)
Quarter: 2013Q3

REPORT INFORMATION
  Report Type: Other
  Country: JP (occurrence: JP)
  Receive Date: 20130925
  Receipt Date: 20130925
  Transmission Date: 20140515
  Serious: Yes (Hospitalization)
  Sender: FDA-Public Use
  Company Number: JP-ACTELION-A-CH2013-88767

PATIENT
  Age: 70 Year
  Sex: Female

DRUGS (5)
  1. TRACLEER [Suspect]
     Indication: PULMONARY HYPERTENSION
     Route: 048
  2. REVATIO [Concomitant]
  3. BERAPROST SODIUM [Concomitant]
  4. OXYGEN [Concomitant]
  5. ELASPOL [Concomitant]

REACTIONS (5)
  - No therapeutic response [Recovering/Resolving]
  - Angioplasty [Recovering/Resolving]
  - Pulmonary oedema [Recovering/Resolving]
  - Cough [Recovering/Resolving]
  - Haemoptysis [Recovering/Resolving]
